FAERS Safety Report 12713961 (Version 1)
Quarter: 2016Q3

REPORT INFORMATION
  Report Type: Spontaneous
  Country: US (occurrence: US)
  Receive Date: 20160905
  Receipt Date: 20160905
  Transmission Date: 20161109
  Serious: No
  Sender: FDA-Public Use
  Company Number: US-009507513-1609USA000326

PATIENT
  Sex: Female

DRUGS (1)
  1. NUVARING [Suspect]
     Active Substance: ETHINYL ESTRADIOL\ETONOGESTREL
     Indication: METRORRHAGIA
     Dosage: UNK
     Route: 067

REACTIONS (3)
  - Menstruation delayed [Unknown]
  - Product use issue [Unknown]
  - Inappropriate schedule of drug administration [Unknown]
